FAERS Safety Report 10410124 (Version 1)
Quarter: 2014Q3

REPORT INFORMATION
  Report Type: Spontaneous
  Country: US (occurrence: None)
  Receive Date: 20140825
  Receipt Date: 20140825
  Transmission Date: 20150326
  Serious: Yes (Other)
  Sender: FDA-Public Use
  Company Number: None

PATIENT
  Age: 24 Year
  Sex: Female
  Weight: 68.04 kg

DRUGS (1)
  1. LUPRON DEPOT [Suspect]
     Active Substance: LEUPROLIDE ACETATE
     Indication: ENDOMETRIOSIS
     Dosage: 1 INJECTION EVERY MONTH 1X A MONTH INJECTION
     Dates: start: 20110201, end: 20110405

REACTIONS (6)
  - Endometriosis [None]
  - Ovarian cyst [None]
  - Uterine leiomyoma [None]
  - Polymenorrhoea [None]
  - Drug ineffective [None]
  - Condition aggravated [None]

NARRATIVE: CASE EVENT DATE: 20110429
